FAERS Safety Report 4923145-6 (Version None)
Quarter: 2006Q1

REPORT INFORMATION
  Report Type: 
  Country: None (occurrence: None)
  Receive Date: 20060113
  Receipt Date: 20050113
  Transmission Date: 20060701
  Serious: Yes (Other)
  Sender: FDA-Public Use
  Company Number: HQWYE199216JUL04

PATIENT
  Age: 54 Year
  Sex: Female

DRUGS (3)
  1. PREMPRO [Suspect]
     Indication: MENOPAUSE
     Dosage: 0.625MG/2.5MG
     Dates: start: 19970101
  2. ACTIVELLA (ESTRADIOL/MORETHISTERONE, ) [Suspect]
  3. PREMARIN [Suspect]
     Dosage: ORAL
     Route: 048
     Dates: start: 19930101

REACTIONS (1)
  - MYOCARDIAL INFARCTION [None]
